FAERS Safety Report 5239520-9 (Version None)
Quarter: 2007Q1

REPORT INFORMATION
  Report Type: 
  Country: None (occurrence: None)
  Receive Date: 20070216
  Receipt Date: 20070208
  Transmission Date: 20070707
  Serious: Yes (Hospitalization)
  Sender: FDA-Public Use
  Company Number: DE-ABBOTT-07P-062-0359012-00

PATIENT
  Sex: Female

DRUGS (1)
  1. KLACID UNO [Suspect]
     Indication: INFLUENZA
     Route: 048
     Dates: start: 20070125, end: 20070128

REACTIONS (6)
  - AGGRESSION [None]
  - HYPONATRAEMIA [None]
  - NAUSEA [None]
  - RIB FRACTURE [None]
  - SYNCOPE [None]
  - VOMITING [None]
